FAERS Safety Report 14499768 (Version 1)
Quarter: 2018Q1

REPORT INFORMATION
  Report Type: Spontaneous
  Country: FR (occurrence: FR)
  Receive Date: 20180207
  Receipt Date: 20180207
  Transmission Date: 20180509
  Serious: Yes (Hospitalization, Other)
  Sender: FDA-Public Use
  Company Number: FR-GLAXOSMITHKLINE-FR2018016672

PATIENT
  Age: 60 Year
  Sex: Male

DRUGS (2)
  1. DEPAKOTE [Interacting]
     Active Substance: DIVALPROEX SODIUM
     Indication: DEPRESSION
     Dosage: 2 DF, UNK
     Route: 048
  2. LAMICTAL [Suspect]
     Active Substance: LAMOTRIGINE
     Indication: DEPRESSION
     Dosage: 12.5 MG, UNK
     Route: 048

REACTIONS (5)
  - Somnolence [Recovered/Resolved]
  - Drug interaction [Unknown]
  - Cerebellar syndrome [Recovered/Resolved]
  - Dysarthria [Recovered/Resolved]
  - Balance disorder [Recovered/Resolved]

NARRATIVE: CASE EVENT DATE: 20171219
